FAERS Safety Report 18099936 (Version 1)
Quarter: 2020Q3

REPORT INFORMATION
  Report Type: Spontaneous
  Country: US (occurrence: US)
  Receive Date: 20200731
  Receipt Date: 20200731
  Transmission Date: 20201103
  Serious: Yes (Other)
  Sender: FDA-Public Use
  Company Number: US-OTSUKA-2020_017824

PATIENT
  Age: 77 Year
  Sex: Male

DRUGS (5)
  1. ABILIFY [Suspect]
     Active Substance: ARIPIPRAZOLE
     Indication: BIPOLAR I DISORDER
     Dosage: 20 MG, QD
     Route: 065
     Dates: start: 2005
  2. PROPRANOLOL [Concomitant]
     Active Substance: PROPRANOLOL HYDROCHLORIDE
     Indication: PRODUCT USED FOR UNKNOWN INDICATION
     Dosage: 10 MG, BID
     Route: 065
  3. SEROQUEL [Concomitant]
     Active Substance: QUETIAPINE FUMARATE
     Indication: SLEEP DISORDER
     Dosage: 200 MG, QD (AT BEDTIME)
     Route: 065
  4. ARIPIPRAZOLE. [Suspect]
     Active Substance: ARIPIPRAZOLE
     Indication: BIPOLAR I DISORDER
     Dosage: 20 MG, QD
     Route: 065
  5. CALCIUM ACETATE. [Suspect]
     Active Substance: CALCIUM ACETATE
     Indication: BLOOD PHOSPHORUS DECREASED
     Dosage: 800 MG, UNK
     Route: 065
     Dates: start: 202007, end: 20200721

REACTIONS (6)
  - Dyskinesia [Recovered/Resolved]
  - Tardive dyskinesia [Recovered/Resolved]
  - Strabismus [Not Recovered/Not Resolved]
  - Restless legs syndrome [Recovered/Resolved]
  - Peritoneal dialysis [Not Recovered/Not Resolved]
  - Eye movement disorder [Recovered/Resolved]

NARRATIVE: CASE EVENT DATE: 20200625
